FAERS Safety Report 5123806-2 (Version None)
Quarter: 2006Q3

REPORT INFORMATION
  Report Type: 
  Country: None (occurrence: None)
  Receive Date: 20060802
  Receipt Date: 20051003
  Transmission Date: 20061208
  Serious: Yes (Other)
  Sender: FDA-Public Use
  Company Number: 2005-10-0084

PATIENT
  Age: 46 Year
  Sex: Female

DRUGS (2)
  1. RIBAVIRIN [Suspect]
     Dosage: UNKNOWN ORAL
     Route: 048
  2. PEGASYS [Suspect]
     Dosage: UNKNOWN

REACTIONS (4)
  - DEPRESSION [None]
  - SUICIDAL IDEATION [None]
  - VIRAL LOAD INCREASED [None]
  - WHITE BLOOD CELL COUNT DECREASED [None]
